FAERS Safety Report 9129663 (Version 2)
Quarter: 2013Q1

REPORT INFORMATION
  Report Type: Report from Study
  Country: DE (occurrence: DE)
  Receive Date: 20130125
  Receipt Date: 20130308
  Transmission Date: 20140127
  Serious: Yes (Hospitalization)
  Sender: FDA-Public Use
  Company Number: DE-BRISTOL-MYERS SQUIBB COMPANY-17316613

PATIENT
  Age: 63 Year
  Sex: Female
  Weight: 70 kg

DRUGS (4)
  1. ERBITUX SOLN FOR INF [Suspect]
     Indication: COLORECTAL CANCER METASTATIC
     Dosage: 35.7143 MG/M2(250MG/M2 1/1 WK)?11JUN12-10SEP12:91DAY?08OCT12-12NOV12:35DAY?17DEC12-07JAN13:21DAY
     Route: 042
     Dates: start: 20120604, end: 20130111
  2. 5-FLUOROURACIL [Concomitant]
     Indication: COLORECTAL CANCER METASTATIC
     Route: 042
     Dates: start: 20120604, end: 20130108
  3. CALCIUM FOLINATE [Concomitant]
     Indication: COLORECTAL CANCER METASTATIC
     Route: 042
     Dates: start: 20120604, end: 20130108
  4. IRINOTECAN HCL [Concomitant]
     Indication: COLORECTAL CANCER METASTATIC
     Route: 042
     Dates: start: 20120604, end: 20130108

REACTIONS (1)
  - Ileus [Not Recovered/Not Resolved]
